FAERS Safety Report 12299870 (Version 1)
Quarter: 2016Q2

REPORT INFORMATION
  Report Type: Spontaneous
  Country: US (occurrence: None)
  Receive Date: 20160422
  Receipt Date: 20160422
  Transmission Date: 20160815
  Serious: Yes (Other)
  Sender: FDA-Public Use
  Company Number: None

PATIENT
  Sex: Female
  Weight: 86.18 kg

DRUGS (2)
  1. COSENTYX [Suspect]
     Active Substance: SECUKINUMAB
     Indication: PSORIASIS
     Dosage: 150 MG/ML
     Route: 058
     Dates: start: 20151211
  2. OTREXUP [Suspect]
     Active Substance: METHOTREXATE
     Indication: PSORIASIS
     Dosage: 25MG/0.4ML
     Route: 058
     Dates: start: 20160308

REACTIONS (1)
  - Gastrointestinal disorder [None]
